FAERS Safety Report 7893986-4 (Version None)
Quarter: 2011Q4

REPORT INFORMATION
  Report Type: 
  Country: None (occurrence: None)
  Receive Date: 20111104
  Receipt Date: 20111031
  Transmission Date: 20120403
  Serious: Yes (Other)
  Sender: FDA-Public Use
  Company Number: US-JNJFOC-20111101139

PATIENT
  Sex: Female
  Weight: 81.65 kg

DRUGS (1)
  1. LEVAQUIN [Suspect]
     Indication: SKIN INFECTION
     Route: 048
     Dates: start: 20110622, end: 20110701

REACTIONS (6)
  - FRACTURE [None]
  - ARTHRITIS [None]
  - GAIT DISTURBANCE [None]
  - CONDITION AGGRAVATED [None]
  - DYSKINESIA [None]
  - DYSSTASIA [None]
